FAERS Safety Report 18226627 (Version 1)
Quarter: 2020Q3

REPORT INFORMATION
  Report Type: Spontaneous
  Country: US (occurrence: US)
  Receive Date: 20200902
  Receipt Date: 20200902
  Transmission Date: 20201103
  Serious: Yes (Hospitalization, Disabling)
  Sender: FDA-Public Use
  Company Number: None

PATIENT
  Age: 59 Year
  Sex: Female
  Weight: 111.58 kg

DRUGS (4)
  1. ASPIRIN. [Concomitant]
     Active Substance: ASPIRIN
  2. PILL TO END CANCER [Concomitant]
  3. DEPAKOTE [Suspect]
     Active Substance: DIVALPROEX SODIUM
     Indication: SCHIZOPHRENIA
     Dosage: ?          QUANTITY:2 OR 3 TEASPOON;OTHER FREQUENCY:5 TIMES DAILY;?
     Route: 048
     Dates: start: 20170101, end: 20200225
  4. THORAZINE [Suspect]
     Active Substance: CHLORPROMAZINE

REACTIONS (3)
  - Pain [None]
  - Anxiety [None]
  - Feeling guilty [None]

NARRATIVE: CASE EVENT DATE: 20190901
